FAERS Safety Report 5243039-9 (Version None)
Quarter: 2007Q1

REPORT INFORMATION
  Report Type: 
  Country: None (occurrence: None)
  Receive Date: 20070215
  Receipt Date: 20070208
  Transmission Date: 20070707
  Serious: Yes (Hospitalization)
  Sender: FDA-Public Use
  Company Number: 2007-00729

PATIENT
  Age: 73 Year
  Sex: Male

DRUGS (8)
  1. METHOCARBAMOL [Suspect]
     Indication: ARTHRITIS
     Dosage: 5 TABLET, DAILY, ORAL
     Route: 048
     Dates: start: 20060601
  2. DIOVAN [Concomitant]
  3. ZETIA [Concomitant]
  4. PLAVIX [Concomitant]
  5. TOPROL-XL [Concomitant]
  6. VALIUM [Concomitant]
  7. HYDROCODONE W/ACETAMINOPHEN (PARACETAMOL) [Concomitant]
  8. TYLENOL [Concomitant]

REACTIONS (3)
  - MYOCARDIAL INFARCTION [None]
  - STENT OCCLUSION [None]
  - STOMACH DISCOMFORT [None]
